FAERS Safety Report 19382042 (Version 1)
Quarter: 2021Q2

REPORT INFORMATION
  Report Type: Report from Study
  Country: US (occurrence: US)
  Receive Date: 20210607
  Receipt Date: 20210607
  Transmission Date: 20210717
  Serious: Yes (Hospitalization, Other)
  Sender: FDA-Public Use
  Company Number: US-TAKEDA-2021TUS034413

PATIENT
  Age: 54 Year
  Sex: Male

DRUGS (7)
  1. TEDUGLUTIDE [Suspect]
     Active Substance: TEDUGLUTIDE
     Indication: SHORT-BOWEL SYNDROME
     Dosage: 3.6 MILLIGRAM, (0.04MG/KG), QD
     Route: 065
     Dates: start: 20180409
  2. BACTROBAN [Concomitant]
     Active Substance: MUPIROCIN\MUPIROCIN CALCIUM
     Indication: PROCTITIS
     Dosage: 1.0 APPLICATION, PRN
     Route: 061
     Dates: start: 20210127
  3. XIFAXAN [Concomitant]
     Active Substance: RIFAXIMIN
     Indication: DIARRHOEA
     Dosage: 550.0 MILLIGRAM, QD
     Route: 048
     Dates: start: 20210127
  4. TEDUGLUTIDE [Suspect]
     Active Substance: TEDUGLUTIDE
     Indication: SHORT-BOWEL SYNDROME
     Dosage: 3.6 MILLIGRAM, (0.04MG/KG), QD
     Route: 065
     Dates: start: 20180409
  5. TEDUGLUTIDE [Suspect]
     Active Substance: TEDUGLUTIDE
     Indication: SHORT-BOWEL SYNDROME
     Dosage: 3.6 MILLIGRAM, (0.04MG/KG), QD
     Route: 065
     Dates: start: 20180409
  6. ANUSOL?HC [Concomitant]
     Active Substance: HYDROCORTISONE
     Indication: PROCTITIS
     Dosage: 1.0 SUPPOSITORY, QHS
     Route: 054
     Dates: start: 20210127
  7. TEDUGLUTIDE [Suspect]
     Active Substance: TEDUGLUTIDE
     Indication: SHORT-BOWEL SYNDROME
     Dosage: 3.6 MILLIGRAM, (0.04MG/KG), QD
     Route: 065
     Dates: start: 20180409

REACTIONS (2)
  - Cardiac perforation [Recovered/Resolved with Sequelae]
  - Pericarditis [Recovering/Resolving]

NARRATIVE: CASE EVENT DATE: 20200721
